FAERS Safety Report 7546298-2 (Version None)
Quarter: 2011Q2

REPORT INFORMATION
  Report Type: 
  Country: None (occurrence: None)
  Receive Date: 20110614
  Receipt Date: 20040402
  Transmission Date: 20111010
  Serious: Yes (Other)
  Sender: FDA-Public Use
  Company Number: PHFR2004GB01671

PATIENT
  Sex: Female

DRUGS (1)
  1. CLOZAPINE [Suspect]
     Dates: start: 20031113

REACTIONS (4)
  - FACE OEDEMA [None]
  - CHEST PAIN [None]
  - EYE PAIN [None]
  - PARAESTHESIA [None]
